FAERS Safety Report 25945706 (Version 1)
Quarter: 2025Q4

REPORT INFORMATION
  Report Type: Spontaneous
  Country: EU (occurrence: EU)
  Receive Date: 20251021
  Receipt Date: 20251021
  Transmission Date: 20260117
  Serious: Yes (Hospitalization, Other)
  Sender: BAUSCH AND LOMB
  Company Number: EU-JNJFOC-20250946186

PATIENT
  Age: 74 Year
  Sex: Male

DRUGS (16)
  1. DEXAMETHASONE [Suspect]
     Active Substance: DEXAMETHASONE
     Indication: Plasma cell myeloma
     Dosage: CYCLE 1
     Route: 065
     Dates: start: 202503
  2. DEXAMETHASONE [Suspect]
     Active Substance: DEXAMETHASONE
     Dosage: CYCLE 2
     Route: 065
     Dates: start: 202505
  3. DEXAMETHASONE [Suspect]
     Active Substance: DEXAMETHASONE
     Dosage: CYCLE 3
     Route: 065
     Dates: start: 202507
  4. DEXAMETHASONE [Suspect]
     Active Substance: DEXAMETHASONE
     Dosage: CYCLE 4
     Route: 065
     Dates: start: 202508
  5. DEXAMETHASONE [Suspect]
     Active Substance: DEXAMETHASONE
     Dosage: DOSE RE-INTRODUCED
     Route: 065
  6. DARZALEX [Suspect]
     Active Substance: DARATUMUMAB
     Indication: Plasma cell myeloma
     Dosage: CYCLE 1
     Route: 065
     Dates: start: 202503
  7. DARZALEX [Suspect]
     Active Substance: DARATUMUMAB
     Dosage: CYCLE 2
     Route: 065
     Dates: start: 202505
  8. DARZALEX [Suspect]
     Active Substance: DARATUMUMAB
     Dosage: CYCLE 3
     Route: 065
     Dates: start: 202507
  9. DARZALEX [Suspect]
     Active Substance: DARATUMUMAB
     Dosage: CYCLE 4
     Route: 065
     Dates: start: 202508
  10. DARZALEX [Suspect]
     Active Substance: DARATUMUMAB
     Dosage: DOSE RE-INTRODUCED
     Route: 065
  11. REVLIMID [Suspect]
     Active Substance: LENALIDOMIDE
     Indication: Plasma cell myeloma
     Dosage: CYCLE 1
     Route: 065
     Dates: start: 202503
  12. REVLIMID [Suspect]
     Active Substance: LENALIDOMIDE
     Dosage: CYCLE 2
     Route: 065
     Dates: start: 202505
  13. REVLIMID [Suspect]
     Active Substance: LENALIDOMIDE
     Dosage: CYCLE 3
     Route: 065
     Dates: start: 202507
  14. REVLIMID [Suspect]
     Active Substance: LENALIDOMIDE
     Dosage: CYCLE 4
     Route: 065
     Dates: start: 202508
  15. REVLIMID [Suspect]
     Active Substance: LENALIDOMIDE
     Dosage: DOSE RE-INTRODUCED
     Route: 065
  16. UNSPECIFIED INGREDIENT [Concomitant]
     Active Substance: UNSPECIFIED INGREDIENT
     Indication: Prophylaxis

REACTIONS (6)
  - Neutropenia [Unknown]
  - Leukopenia [Unknown]
  - Pathological fracture [Unknown]
  - Blood creatine increased [Recovering/Resolving]
  - Varicella [Recovered/Resolved]
  - Inappropriate schedule of product administration [Unknown]

NARRATIVE: CASE EVENT DATE: 20250501
